FAERS Safety Report 10349433 (Version 1)
Quarter: 2014Q3

REPORT INFORMATION
  Report Type: Spontaneous
  Country: US (occurrence: None)
  Receive Date: 20140728
  Receipt Date: 20140728
  Transmission Date: 20150326
  Serious: No
  Sender: FDA-Public Use
  Company Number: None

PATIENT
  Age: 54 Year
  Sex: Male
  Weight: 79.4 kg

DRUGS (1)
  1. VANCOMYCIN [Suspect]
     Active Substance: VANCOMYCIN
     Indication: PNEUMONIA
     Route: 042
     Dates: start: 20140709, end: 20140710

REACTIONS (2)
  - Renal failure acute [None]
  - Renal tubular necrosis [None]

NARRATIVE: CASE EVENT DATE: 20140720
